FAERS Safety Report 16568868 (Version 1)
Quarter: 2019Q3

REPORT INFORMATION
  Report Type: Spontaneous
  Country: DE (occurrence: DE)
  Receive Date: 20190713
  Receipt Date: 20190713
  Transmission Date: 20191004
  Serious: Yes (Hospitalization, Other)
  Sender: FDA-Public Use
  Company Number: DE-TEVA-2019-DE-1076053

PATIENT
  Age: 52 Year
  Sex: Male

DRUGS (13)
  1. UROMITEXAN 400 MG [Concomitant]
     Active Substance: MESNA
     Dosage: 400 MG, ON THE DAY OF CHEMO
  2. DOXORUBICIN [Suspect]
     Active Substance: DOXORUBICIN
     Dosage: NK MG, NK
  3. RITUXIMAB. [Suspect]
     Active Substance: RITUXIMAB
     Dosage: NK MG, NK
  4. VINCRISTINE [Suspect]
     Active Substance: VINCRISTINE
     Dosage: NK MG, NK
  5. CEFASEL [Concomitant]
     Dosage: 100 MG, 1X1
  6. PANTOPRAZOL [Concomitant]
     Active Substance: PANTOPRAZOLE SODIUM
     Dosage: 40 MG, 1-2
  7. CYCLOPHOSPHAMID [Suspect]
     Active Substance: CYCLOPHOSPHAMIDE
     Dosage: NK MG, NK
  8. ACICLOVIR [Concomitant]
     Active Substance: ACYCLOVIR
     Dosage: 400 MG, 1X1
  9. NEULASTA [Concomitant]
     Active Substance: PEGFILGRASTIM
     Dosage: NK MG, ON THE DAY OF CHEMO
  10. DEKRISTOL 20000I.E. [Concomitant]
     Dosage: 20000 IE, 1X1/FR
  11. PREDNISOLON [Suspect]
     Active Substance: PREDNISOLONE
     Dosage: 50 MG, DURING AND 3 D AFTER CHEMO
  12. COTRIM FORTE [Concomitant]
     Active Substance: SULFAMETHOXAZOLE\TRIMETHOPRIM
     Dosage: 800|160 MG, 1X/MO, WED, FR
  13. ALLOPURINOL. [Concomitant]
     Active Substance: ALLOPURINOL
     Dosage: 300 MG, 1X1

REACTIONS (5)
  - Asthenia [Unknown]
  - Dyspnoea [Unknown]
  - Pain [Unknown]
  - Decreased appetite [Unknown]
  - Leukopenia [Unknown]
